FAERS Safety Report 14895282 (Version 1)
Quarter: 2018Q2

REPORT INFORMATION
  Report Type: Report from Study
  Country: RU (occurrence: RU)
  Receive Date: 20180515
  Receipt Date: 20180515
  Transmission Date: 20180711
  Serious: Yes (Hospitalization)
  Sender: FDA-Public Use
  Company Number: RU-ACTELION-A-CH2017-161160

PATIENT
  Age: 48 Year
  Sex: Male
  Weight: 85 kg

DRUGS (9)
  1. TORASEMID [Concomitant]
     Active Substance: TORSEMIDE
     Dosage: UNK
     Dates: start: 20171031
  2. LASIX [Concomitant]
     Active Substance: FUROSEMIDE
     Dosage: UNK
     Dates: start: 20171101
  3. SPIRONOLACTONE. [Concomitant]
     Active Substance: SPIRONOLACTONE
     Dosage: UNK
     Dates: start: 20171020
  4. MACITENTAN [Suspect]
     Active Substance: MACITENTAN
     Indication: PULMONARY HYPERTENSION
     Dosage: 10 MG, QD
     Route: 048
     Dates: start: 20151110
  5. VEROSPIRONE [Concomitant]
     Active Substance: SPIRONOLACTONE
     Dosage: UNK
     Dates: start: 20171016
  6. SILDENAFIL. [Concomitant]
     Active Substance: SILDENAFIL
     Dosage: UNK
     Dates: start: 20170124
  7. DIACARB [Concomitant]
     Dosage: UNK
     Dates: start: 20171017
  8. MACITENTAN [Suspect]
     Active Substance: MACITENTAN
     Indication: PULMONARY HYPERTENSION
     Dosage: 10 MG, QD
     Route: 048
     Dates: start: 20151110
  9. WARFARIN [Concomitant]
     Active Substance: WARFARIN
     Dosage: UNK
     Dates: start: 20171028

REACTIONS (13)
  - Ascites [Recovered/Resolved with Sequelae]
  - Pulmonary hypertension [Recovered/Resolved]
  - Hepatic cirrhosis [Unknown]
  - Cardiac failure [Recovered/Resolved with Sequelae]
  - Bile duct stone [Unknown]
  - Oedema [Recovered/Resolved with Sequelae]
  - Cholecystitis [Unknown]
  - Peripheral swelling [Recovered/Resolved]
  - Hydrothorax [Recovered/Resolved with Sequelae]
  - Dyspnoea [Recovered/Resolved with Sequelae]
  - Pericardial effusion [Recovered/Resolved with Sequelae]
  - Generalised oedema [Recovered/Resolved with Sequelae]
  - Pancreatitis chronic [Unknown]

NARRATIVE: CASE EVENT DATE: 20171016
